FAERS Safety Report 10512692 (Version 1)
Quarter: 2014Q4

REPORT INFORMATION
  Report Type: Spontaneous
  Country: FR (occurrence: FR)
  Receive Date: 20141012
  Receipt Date: 20141012
  Transmission Date: 20150528
  Serious: Yes (Hospitalization, Other)
  Sender: FDA-Public Use
  Company Number: FR-MYLANLABS-2014M1006730

PATIENT

DRUGS (3)
  1. BACLOFEN. [Suspect]
     Active Substance: BACLOFEN
     Indication: SUICIDE ATTEMPT
     Dosage: 2000MG
     Route: 065
  2. BACLOFEN. [Suspect]
     Active Substance: BACLOFEN
     Indication: ALCOHOL USE
     Dosage: REACHED 210 MG/D AFTER 4 MONTHS
     Route: 065
  3. BACLOFEN. [Suspect]
     Active Substance: BACLOFEN
     Indication: OFF LABEL USE

REACTIONS (9)
  - Suicide attempt [Unknown]
  - Neurological decompensation [Unknown]
  - Confusional state [Recovering/Resolving]
  - Rhabdomyolysis [Recovering/Resolving]
  - Lactic acidosis [Unknown]
  - Intentional overdose [Unknown]
  - Drug withdrawal syndrome [Recovering/Resolving]
  - Hypoxia [Unknown]
  - Delirium [Recovering/Resolving]
